FAERS Safety Report 16844563 (Version 4)
Quarter: 2020Q1

REPORT INFORMATION
  Report Type: Spontaneous
  Country: US (occurrence: US)
  Receive Date: 20190924
  Receipt Date: 20200306
  Transmission Date: 20200409
  Serious: Yes (Other)
  Sender: FDA-Public Use
  Company Number: US-ARRAY-2019-06350

PATIENT

DRUGS (4)
  1. MEKTOVI [Suspect]
     Active Substance: BINIMETINIB
     Indication: COLON CANCER
     Dosage: 45 MG, BID
     Route: 048
     Dates: start: 20190904
  2. MEKTOVI [Suspect]
     Active Substance: BINIMETINIB
     Dosage: UNK
  3. BRAFTOVI [Suspect]
     Active Substance: ENCORAFENIB
     Indication: COLON CANCER
     Dosage: 300 MG, QD
     Route: 048
     Dates: start: 20190904
  4. BRAFTOVI [Suspect]
     Active Substance: ENCORAFENIB
     Dosage: 300 MG, QD
     Route: 048

REACTIONS (6)
  - Product use in unapproved indication [Unknown]
  - Abdominal pain upper [Unknown]
  - Muscle spasms [Unknown]
  - Abdominal discomfort [Unknown]
  - Colon cancer metastatic [Unknown]
  - Hypertension [Unknown]

NARRATIVE: CASE EVENT DATE: 20200228
